FAERS Safety Report 5678574-2 (Version None)
Quarter: 2008Q1

REPORT INFORMATION
  Report Type: 
  Country: None (occurrence: None)
  Receive Date: 20080325
  Receipt Date: 20080312
  Transmission Date: 20080703
  Serious: Yes (Hospitalization)
  Sender: FDA-Public Use
  Company Number: ES-AMGEN-UK267731

PATIENT
  Sex: Female

DRUGS (4)
  1. NEULASTA [Suspect]
     Indication: CHEMOTHERAPY
     Route: 058
     Dates: start: 20080215
  2. DOCETAXEL [Concomitant]
     Dates: start: 20080214
  3. DOXORUBICIN HYDROCHLORIDE [Concomitant]
     Dates: start: 20080214
  4. CYCLOPHOSPHAMIDE [Concomitant]
     Dates: start: 20080214

REACTIONS (1)
  - FEBRILE NEUTROPENIA [None]
